FAERS Safety Report 6977002-4 (Version None)
Quarter: 2010Q3

REPORT INFORMATION
  Report Type: 
  Country: None (occurrence: None)
  Receive Date: 20100910
  Receipt Date: 20100906
  Transmission Date: 20110219
  Serious: Yes (Hospitalization)
  Sender: FDA-Public Use
  Company Number: FR-ROCHE-725533

PATIENT
  Age: 70 Year

DRUGS (1)
  1. ROCEPHIN [Suspect]
     Indication: PERICARDITIS INFECTIVE
     Dosage: OVERDOSE
     Route: 065
     Dates: end: 20100830

REACTIONS (2)
  - ENCEPHALOPATHY [None]
  - OVERDOSE [None]
